FAERS Safety Report 18327478 (Version 1)
Quarter: 2020Q3

REPORT INFORMATION
  Report Type: Spontaneous
  Country: US (occurrence: US)
  Receive Date: 20200929
  Receipt Date: 20200929
  Transmission Date: 20201103
  Serious: Yes (Hospitalization)
  Sender: FDA-Public Use
  Company Number: US-JNJFOC-20200929808

PATIENT
  Age: 30 Year
  Sex: Female

DRUGS (13)
  1. BETAMETHASONE. [Concomitant]
     Active Substance: BETAMETHASONE
  2. EPOPROSTENOL SODIUM. [Suspect]
     Active Substance: EPOPROSTENOL SODIUM
     Route: 042
  3. OXYTOCIN. [Concomitant]
     Active Substance: OXYTOCIN
  4. ENOXAPARIN [Concomitant]
     Active Substance: ENOXAPARIN
  5. HEPARIN [Concomitant]
     Active Substance: HEPARIN SODIUM
     Route: 058
  6. BUPIVACAINE. [Concomitant]
     Active Substance: BUPIVACAINE
  7. SILDENAFIL. [Concomitant]
     Active Substance: SILDENAFIL
     Route: 048
  8. ENOXAPARIN [Concomitant]
     Active Substance: ENOXAPARIN
  9. FENTANYL. [Concomitant]
     Active Substance: FENTANYL
  10. OXYGEN. [Concomitant]
     Active Substance: OXYGEN
  11. CHLOROPROCAINE [Concomitant]
     Active Substance: CHLOROPROCAINE
  12. EPOPROSTENOL SODIUM. [Suspect]
     Active Substance: EPOPROSTENOL SODIUM
     Indication: PULMONARY HYPERTENSION
     Route: 042
  13. ROPIVACAINE. [Concomitant]
     Active Substance: ROPIVACAINE HYDROCHLORIDE

REACTIONS (4)
  - Hypovolaemia [Recovered/Resolved]
  - Platelet dysfunction [Unknown]
  - Exposure during pregnancy [Recovered/Resolved]
  - Umbilical cord prolapse [Recovered/Resolved]
